FAERS Safety Report 8029490-2 (Version None)
Quarter: 2012Q1

REPORT INFORMATION
  Report Type: 
  Country: None (occurrence: None)
  Receive Date: 20120109
  Receipt Date: 20120104
  Transmission Date: 20120608
  Serious: Yes (Hospitalization, Other)
  Sender: FDA-Public Use
  Company Number: US-BRISTOL-MYERS SQUIBB COMPANY-16230286

PATIENT
  Age: 69 Year
  Sex: Female
  Weight: 56 kg

DRUGS (7)
  1. PRILOSEC [Concomitant]
     Dates: start: 20111031
  2. BEVACIZUMAB [Suspect]
     Indication: METASTATIC MALIGNANT MELANOMA
     Dosage: LAST DOSE ON 29DEC2011
     Route: 042
     Dates: start: 20111024
  3. HYDROXYZINE HCL [Concomitant]
     Dates: start: 20111108
  4. MULTI-VITAMINS [Concomitant]
     Dates: start: 20111031
  5. CIPROFLOXACIN [Concomitant]
     Dates: start: 20111114
  6. ATIVAN [Concomitant]
     Dates: start: 20110926
  7. IPILIMUMAB [Suspect]
     Indication: METASTATIC MALIGNANT MELANOMA
     Dosage: FREQUNCY:Q3M. LAST DOSE ONN29DEC2011
     Route: 042
     Dates: start: 20111024, end: 20111229

REACTIONS (3)
  - LOWER GASTROINTESTINAL HAEMORRHAGE [None]
  - NEOPLASM MALIGNANT [None]
  - DYSPNOEA [None]
